FAERS Safety Report 5603305-1 (Version None)
Quarter: 2008Q1

REPORT INFORMATION
  Report Type: 
  Country: None (occurrence: None)
  Receive Date: 20080123
  Receipt Date: 20080110
  Transmission Date: 20080703
  Serious: Yes (Hospitalization)
  Sender: FDA-Public Use
  Company Number: 2008SP000770

PATIENT
  Sex: Female

DRUGS (3)
  1. NOXAFIL [Suspect]
     Indication: TRANSPLANT
     Dates: start: 20070101, end: 20071201
  2. CORTICOSTEROID [Concomitant]
  3. CELLCEPT [Concomitant]

REACTIONS (5)
  - BLINDNESS [None]
  - DEMYELINATION [None]
  - DRUG INEFFECTIVE [None]
  - DRUG TOXICITY [None]
  - QUADRIPARESIS [None]
